FAERS Safety Report 13484121 (Version 2)
Quarter: 2017Q2

REPORT INFORMATION
  Report Type: Spontaneous
  Country: EG (occurrence: EG)
  Receive Date: 20170426
  Receipt Date: 20170505
  Transmission Date: 20170830
  Serious: No
  Sender: FDA-Public Use
  Company Number: EG-ROCHE-1924740

PATIENT
  Sex: Male

DRUGS (1)
  1. MABTHERA [Suspect]
     Active Substance: RITUXIMAB
     Indication: NEOPLASM MALIGNANT
     Route: 042

REACTIONS (5)
  - Abdominal pain [Unknown]
  - Fatigue [Unknown]
  - Helplessness [Unknown]
  - Alopecia [Unknown]
  - Nausea [Unknown]
